FAERS Safety Report 9735192 (Version 1)
Quarter: 2013Q4

REPORT INFORMATION
  Report Type: Spontaneous
  Country: IN (occurrence: None)
  Receive Date: 20131204
  Receipt Date: 20131204
  Transmission Date: 20140711
  Serious: No
  Sender: FDA-Public Use
  Company Number: B0949146A

PATIENT
  Age: 38 Year
  Sex: Female

DRUGS (2)
  1. RANITIDINE HYDROCHLORIDE [Suspect]
     Indication: SURGERY
     Route: 030
  2. ONDANSETRON HYDROCHLORIDE [Suspect]
     Indication: SURGERY
     Route: 042

REACTIONS (5)
  - Cardiac arrest [None]
  - Unresponsive to stimuli [None]
  - Apnoea [None]
  - Electrocardiogram abnormal [None]
  - Cardio-respiratory arrest [None]
